FAERS Safety Report 22177269 (Version 1)
Quarter: 2023Q2

REPORT INFORMATION
  Report Type: Spontaneous
  Country: US (occurrence: None)
  Receive Date: 20230405
  Receipt Date: 20230405
  Transmission Date: 20230722
  Serious: Yes (Other)
  Sender: FDA-Public Use
  Company Number: None

PATIENT
  Age: 75 Year
  Sex: 0

DRUGS (1)
  1. ADUCANUMAB-AVWA [Suspect]
     Active Substance: ADUCANUMAB-AVWA
     Indication: Dementia Alzheimer^s type

REACTIONS (1)
  - Amyloid related imaging abnormalities [None]

NARRATIVE: CASE EVENT DATE: 20220916
